FAERS Safety Report 9179523 (Version 2)
Quarter: 2013Q2

REPORT INFORMATION
  Report Type: Report from Study
  Country: MX (occurrence: MX)
  Receive Date: 20130321
  Receipt Date: 20130423
  Transmission Date: 20140414
  Serious: Yes (Other)
  Sender: FDA-Public Use
  Company Number: PHHY2013MX027307

PATIENT
  Age: 76 Year
  Sex: Female

DRUGS (8)
  1. CO-DIOVAN [Suspect]
     Indication: HYPERTENSION
     Dosage: 1 DF (160/12.5MG) DAILY
     Route: 048
     Dates: start: 201111, end: 201303
  2. ACETYLSALICYLIC ACID [Concomitant]
     Dosage: 1 UKN, DAILY
  3. OMEPRAZOLE [Concomitant]
     Dosage: 1 UKN, DAILY
  4. METFORMIN [Concomitant]
     Dosage: 1 UKN, DAILY
  5. ONGLYZA [Concomitant]
     Dosage: 1 UKN, DAILY
  6. CARBAMAZEPINE [Concomitant]
     Dosage: 2 UKN, DAILY
  7. SOMAZINE [Concomitant]
     Dosage: 1 UKN, DAILY
  8. ZANIDIP [Concomitant]
     Dosage: 1 UKN, DAILY

REACTIONS (8)
  - Blood potassium increased [Recovering/Resolving]
  - Brain hypoxia [Not Recovered/Not Resolved]
  - Petit mal epilepsy [Not Recovered/Not Resolved]
  - Hearing impaired [Not Recovered/Not Resolved]
  - Vision blurred [Recovering/Resolving]
  - Headache [Recovered/Resolved]
  - Asthenia [Not Recovered/Not Resolved]
  - Fatigue [Not Recovered/Not Resolved]
